FAERS Safety Report 10249593 (Version 2)
Quarter: 2015Q3

REPORT INFORMATION
  Report Type: Spontaneous
  Country: US (occurrence: US)
  Receive Date: 20140620
  Receipt Date: 20150717
  Transmission Date: 20151125
  Serious: Yes (Death, Other)
  Sender: FDA-Public Use
  Company Number: US-SA-2014SA078120

PATIENT

DRUGS (5)
  1. PLAVIX [Suspect]
     Active Substance: CLOPIDOGREL BISULFATE
     Indication: ACUTE CORONARY SYNDROME
     Route: 048
     Dates: start: 199106, end: 200902
  2. ASPIRIN. [Concomitant]
     Active Substance: ASPIRIN
     Dates: start: 1994, end: 2008
  3. PLAVIX [Suspect]
     Active Substance: CLOPIDOGREL BISULFATE
     Indication: CEREBROVASCULAR ACCIDENT
     Route: 048
     Dates: start: 199106, end: 200902
  4. ASPIRIN. [Concomitant]
     Active Substance: ASPIRIN
     Dates: start: 2008, end: 2009
  5. ASPIRIN. [Concomitant]
     Active Substance: ASPIRIN
     Dates: start: 1991, end: 1994

REACTIONS (9)
  - Renal failure [Fatal]
  - Gastrointestinal haemorrhage [Fatal]
  - Rectal haemorrhage [Fatal]
  - Thrombotic thrombocytopenic purpura [Unknown]
  - Cerebrovascular accident [Fatal]
  - Cerebral haemorrhage [Unknown]
  - Ulcer haemorrhage [Unknown]
  - Myocardial infarction [Fatal]
  - Multiple injuries [Unknown]
